FAERS Safety Report 14186324 (Version 1)
Quarter: 2017Q4

REPORT INFORMATION
  Report Type: Spontaneous
  Country: RO (occurrence: RO)
  Receive Date: 20171114
  Receipt Date: 20171114
  Transmission Date: 20180321
  Serious: Yes (Death, Other)
  Sender: FDA-Public Use
  Company Number: RO-ROCHE-2021513

PATIENT
  Age: 32 Year
  Sex: Female

DRUGS (9)
  1. ENDOXAN [Concomitant]
     Active Substance: CYCLOPHOSPHAMIDE
     Route: 065
  2. TRASTUZUMAB. [Suspect]
     Active Substance: TRASTUZUMAB
     Indication: BREAST CANCER
     Dosage: MAINTANENCE DOSE
     Route: 065
     Dates: start: 2010, end: 201305
  3. DOCETAXEL. [Concomitant]
     Active Substance: DOCETAXEL
     Route: 065
  4. GOSERELIN [Concomitant]
     Active Substance: GOSERELIN
     Route: 058
  5. TAMOXIFEN [Concomitant]
     Active Substance: TAMOXIFEN
     Route: 048
  6. PEGYLATED LIPOSOMAL DOXORUBICIN [Concomitant]
     Active Substance: DOXORUBICIN
     Route: 065
  7. TRASTUZUMAB. [Suspect]
     Active Substance: TRASTUZUMAB
     Dosage: LOADING DOSE
     Route: 065
  8. PACLITAXEL. [Concomitant]
     Active Substance: PACLITAXEL
     Route: 065
     Dates: start: 201009
  9. EPIRUBICIN [Concomitant]
     Active Substance: EPIRUBICIN
     Route: 065

REACTIONS (4)
  - Malaise [Unknown]
  - Brain oedema [Unknown]
  - Headache [Unknown]
  - Asthenia [Unknown]

NARRATIVE: CASE EVENT DATE: 201401
